FAERS Safety Report 13373951 (Version 1)
Quarter: 2017Q1

REPORT INFORMATION
  Report Type: Spontaneous
  Country: US (occurrence: US)
  Receive Date: 20170327
  Receipt Date: 20170327
  Transmission Date: 20170429
  Serious: Yes (Other)
  Sender: FDA-Public Use
  Company Number: None

PATIENT
  Age: 30 Year
  Sex: Female
  Weight: 78.75 kg

DRUGS (1)
  1. INJECTAFER [Suspect]
     Active Substance: FERRIC CARBOXYMALTOSE
     Indication: IRON DEFICIENCY ANAEMIA
     Dosage: ?          OTHER FREQUENCY:TWICE MONTHLY;?
     Route: 041
     Dates: start: 20170327, end: 20170327

REACTIONS (3)
  - Dizziness [None]
  - Gastrooesophageal reflux disease [None]
  - Chest discomfort [None]

NARRATIVE: CASE EVENT DATE: 20170327
